FAERS Safety Report 14295046 (Version 1)
Quarter: 2017Q4

REPORT INFORMATION
  Report Type: Spontaneous
  Country: FR (occurrence: FR)
  Receive Date: 20171218
  Receipt Date: 20171218
  Transmission Date: 20180321
  Serious: Yes (Death, Life-Threatening, Hospitalization)
  Sender: FDA-Public Use
  Company Number: FR-CIPLA LTD.-2017FR24810

PATIENT

DRUGS (1)
  1. FINASTERIDE. [Suspect]
     Active Substance: FINASTERIDE
     Indication: ALOPECIA
     Dosage: 1 MG, QD, (OCTAGONAL AND ORANGE TABLETS DAILY)
     Route: 048
     Dates: start: 201009, end: 201304

REACTIONS (30)
  - Hyperandrogenism [Not Recovered/Not Resolved]
  - Disturbance in attention [Not Recovered/Not Resolved]
  - Blunted affect [Not Recovered/Not Resolved]
  - Headache [Not Recovered/Not Resolved]
  - Hypersensitivity [Unknown]
  - Erectile dysfunction [Not Recovered/Not Resolved]
  - Slow speech [Unknown]
  - Amnesia [Not Recovered/Not Resolved]
  - Asthenia [Not Recovered/Not Resolved]
  - Loss of libido [Not Recovered/Not Resolved]
  - Testicular pain [Not Recovered/Not Resolved]
  - Vomiting [Unknown]
  - Cognitive disorder [Unknown]
  - Suicidal ideation [Not Recovered/Not Resolved]
  - Penile size reduced [Not Recovered/Not Resolved]
  - Genital disorder male [Not Recovered/Not Resolved]
  - Major depression [Not Recovered/Not Resolved]
  - Testicular disorder [Not Recovered/Not Resolved]
  - Sleep disorder [Not Recovered/Not Resolved]
  - Blood testosterone decreased [Unknown]
  - Social anxiety disorder [Unknown]
  - Fatigue [Not Recovered/Not Resolved]
  - Completed suicide [Fatal]
  - Anxiety [Not Recovered/Not Resolved]
  - Alcohol intolerance [Not Recovered/Not Resolved]
  - Gynaecomastia [Not Recovered/Not Resolved]
  - Insomnia [Unknown]
  - Ejaculation failure [Not Recovered/Not Resolved]
  - Food intolerance [Not Recovered/Not Resolved]
  - Libido decreased [Not Recovered/Not Resolved]

NARRATIVE: CASE EVENT DATE: 201009
